FAERS Safety Report 21472882 (Version 1)
Quarter: 2022Q4

REPORT INFORMATION
  Report Type: Spontaneous
  Country: US (occurrence: US)
  Receive Date: 20221018
  Receipt Date: 20221018
  Transmission Date: 20230113
  Serious: No
  Sender: FDA-Public Use
  Company Number: US-PERRIGO-22US005282

PATIENT
  Age: 78 Year
  Sex: Male
  Weight: 56.689 kg

DRUGS (1)
  1. NICOTINE POLACRILEX [Suspect]
     Active Substance: NICOTINE
     Indication: Smoking cessation therapy
     Dosage: 4 MG TO 12 MG, QD
     Route: 002
     Dates: start: 2012

REACTIONS (1)
  - Accidental exposure to product [Unknown]
